FAERS Safety Report 16435061 (Version 1)
Quarter: 2019Q2

REPORT INFORMATION
  Report Type: Spontaneous
  Country: US (occurrence: US)
  Receive Date: 20190614
  Receipt Date: 20190614
  Transmission Date: 20190711
  Serious: No
  Sender: FDA-Public Use
  Company Number: US-JNJFOC-20190529819

PATIENT
  Sex: Female

DRUGS (5)
  1. ORTHO TRI CYCLEN LO [Suspect]
     Active Substance: ETHINYL ESTRADIOL\NORGESTIMATE
     Indication: AMENORRHOEA
     Route: 048
  2. ORTHO TRI CYCLEN [Suspect]
     Active Substance: ETHINYL ESTRADIOL\NORGESTIMATE
     Indication: BONE DENSITY DECREASED
     Route: 048
  3. ORTHO TRI CYCLEN LO [Suspect]
     Active Substance: ETHINYL ESTRADIOL\NORGESTIMATE
     Indication: BONE DENSITY DECREASED
     Route: 048
  4. ORTHO TRI CYCLEN LO [Suspect]
     Active Substance: ETHINYL ESTRADIOL\NORGESTIMATE
     Indication: BLOOD OESTROGEN DECREASED
     Route: 048
  5. ORTHO TRI CYCLEN [Suspect]
     Active Substance: ETHINYL ESTRADIOL\NORGESTIMATE
     Indication: BLOOD OESTROGEN DECREASED
     Route: 048

REACTIONS (3)
  - Malaise [Recovered/Resolved]
  - Off label use [Unknown]
  - Product use in unapproved indication [Unknown]
